FAERS Safety Report 13680871 (Version 1)
Quarter: 2017Q2

REPORT INFORMATION
  Report Type: Spontaneous
  Country: US (occurrence: US)
  Receive Date: 20170623
  Receipt Date: 20170623
  Transmission Date: 20170830
  Serious: No
  Sender: FDA-Public Use
  Company Number: US-BRISTOL-MYERS SQUIBB COMPANY-BMS-2017-055044

PATIENT
  Sex: Male

DRUGS (1)
  1. ABILIFY [Suspect]
     Active Substance: ARIPIPRAZOLE
     Indication: AGITATION
     Dosage: 10 MG, QD
     Route: 065

REACTIONS (3)
  - Wrong technique in product usage process [Unknown]
  - Product use in unapproved indication [Unknown]
  - Drug ineffective [Unknown]
